FAERS Safety Report 5883446-4 (Version None)
Quarter: 2008Q3

REPORT INFORMATION
  Report Type: 
  Country: None (occurrence: None)
  Receive Date: 20080910
  Receipt Date: 20080827
  Transmission Date: 20090109
  Serious: Yes (Other)
  Sender: FDA-Public Use
  Company Number: THQ2008A01240

PATIENT
  Age: 65 Year
  Sex: Female

DRUGS (3)
  1. LANSOPRAZOLE [Suspect]
     Indication: GASTROOESOPHAGEAL REFLUX DISEASE
     Dosage: 30 MG (1 D), PER ORAL
     Route: 048
     Dates: start: 19980601
  2. LAMALINE /01708901/(SUPPOSITORY) [Concomitant]
  3. SANMIGRAN (PIZOTIFEN MALEATE)(SUPPOSITORY) [Concomitant]

REACTIONS (2)
  - CATARACT [None]
  - VISUAL ACUITY REDUCED [None]
